FAERS Safety Report 24323337 (Version 1)
Quarter: 2024Q3

REPORT INFORMATION
  Report Type: Spontaneous
  Country: US (occurrence: US)
  Receive Date: 20240916
  Receipt Date: 20240916
  Transmission Date: 20241016
  Serious: Yes (Other)
  Sender: HIKMA
  Company Number: HIKM2407964

PATIENT

DRUGS (2)
  1. PREDNISONE [Suspect]
     Active Substance: PREDNISONE
     Indication: Product used for unknown indication
     Dosage: UNKNOWN
     Route: 065
  2. TRIAMCINOLONE [Suspect]
     Active Substance: TRIAMCINOLONE
     Indication: Ear disorder
     Dosage: UNKNOWN
     Route: 065

REACTIONS (4)
  - Lymphadenopathy [Unknown]
  - Pruritus [Unknown]
  - Skin disorder [Unknown]
  - Anaphylactic shock [Unknown]
